FAERS Safety Report 13615498 (Version 1)
Quarter: 2017Q2

REPORT INFORMATION
  Report Type: Spontaneous
  Country: US (occurrence: US)
  Receive Date: 20170606
  Receipt Date: 20170606
  Transmission Date: 20170830
  Serious: No
  Sender: FDA-Public Use
  Company Number: US-PFIZER INC-2017245391

PATIENT
  Age: 63 Year
  Sex: Male

DRUGS (5)
  1. PREDNISONE. [Concomitant]
     Active Substance: PREDNISONE
     Dosage: 20 MG, DAILY (FOR FIVE DAYS)
     Route: 048
     Dates: start: 201705, end: 201705
  2. CHANTIX [Suspect]
     Active Substance: VARENICLINE TARTRATE
     Indication: SMOKING CESSATION THERAPY
     Dosage: UNK
     Route: 048
     Dates: start: 20170411, end: 201705
  3. AMOXICILLIN. [Concomitant]
     Active Substance: AMOXICILLIN
     Indication: TOOTH DISORDER
     Dosage: 2000 MG, SINGLE, AN HOUR BEFORE PROCEDURE
     Route: 048
     Dates: start: 20170426, end: 20170426
  4. PREDNISONE. [Concomitant]
     Active Substance: PREDNISONE
     Indication: SINUSITIS
     Dosage: 10 MG, 3X/DAY, FOR FIVE DAYS
     Route: 048
     Dates: start: 20170426, end: 20170430
  5. PREDNISONE. [Concomitant]
     Active Substance: PREDNISONE
     Dosage: 10 MG, DAILY (FOR FIVE DAYS)
     Route: 048
     Dates: start: 201705, end: 201705

REACTIONS (1)
  - Ageusia [Not Recovered/Not Resolved]

NARRATIVE: CASE EVENT DATE: 2017
